FAERS Safety Report 13890489 (Version 1)
Quarter: 2017Q3

REPORT INFORMATION
  Report Type: Spontaneous
  Country: GB (occurrence: GB)
  Receive Date: 20170822
  Receipt Date: 20170822
  Transmission Date: 20171127
  Serious: Yes (Other)
  Sender: FDA-Public Use
  Company Number: GB-HETERO CORPORATE-HET2017GB00032

PATIENT
  Age: 3 Year
  Sex: Female

DRUGS (6)
  1. PYRIDOXINE [Concomitant]
     Active Substance: PYRIDOXINE
     Indication: MYOCLONUS
     Dosage: UNK
     Route: 065
  2. PYRIDOXINE [Concomitant]
     Active Substance: PYRIDOXINE
     Indication: GENE MUTATION
  3. CARBAMAZEPINE. [Concomitant]
     Active Substance: CARBAMAZEPINE
     Indication: MYOCLONUS
  4. LEVETIRACETAM. [Suspect]
     Active Substance: LEVETIRACETAM
     Indication: MYOCLONUS
     Route: 065
  5. CARBAMAZEPINE. [Concomitant]
     Active Substance: CARBAMAZEPINE
     Indication: GENE MUTATION
     Route: 065
  6. BROMOCRIPTINE /00412202/ [Suspect]
     Active Substance: BROMOCRIPTINE MESYLATE
     Indication: MYOCLONUS
     Route: 065

REACTIONS (3)
  - Dyskinesia [Recovering/Resolving]
  - Condition aggravated [Unknown]
  - Myoclonus [Recovering/Resolving]
